FAERS Safety Report 8426430-9 (Version None)
Quarter: 2012Q2

REPORT INFORMATION
  Report Type: 
  Country: None (occurrence: None)
  Receive Date: 20120611
  Receipt Date: 20120604
  Transmission Date: 20120825
  Serious: Yes (Hospitalization)
  Sender: FDA-Public Use
  Company Number: AT-PFIZER INC-2012080341

PATIENT
  Age: 61 Year
  Sex: Female
  Weight: 56 kg

DRUGS (1)
  1. CRIZOTINIB [Suspect]
     Indication: BRONCHIAL NEOPLASM
     Dosage: 500 MG, DAILY
     Dates: start: 20120308, end: 20120321

REACTIONS (3)
  - GENERAL PHYSICAL HEALTH DETERIORATION [None]
  - KERATOPATHY [None]
  - PNEUMONIA [None]
